FAERS Safety Report 9881522 (Version 3)
Quarter: 2014Q1

REPORT INFORMATION
  Report Type: Spontaneous
  Country: FI (occurrence: FI)
  Receive Date: 20140207
  Receipt Date: 20140327
  Transmission Date: 20141002
  Serious: Yes (Hospitalization, Other)
  Sender: FDA-Public Use
  Company Number: FI-PFIZER INC-2014031383

PATIENT
  Age: 76 Year
  Sex: Male

DRUGS (12)
  1. BOSULIF [Suspect]
     Indication: CHRONIC MYELOID LEUKAEMIA
     Dosage: 300 MG, UNK
     Route: 048
     Dates: start: 201312
  2. BOSULIF [Suspect]
     Dosage: 300 MG, DAILY
     Route: 048
     Dates: start: 20140131, end: 20140214
  3. KALCIPOS-D [Concomitant]
     Dosage: 1 G / 800 IU, DAILY
     Route: 048
  4. KALEORID [Concomitant]
     Dosage: 1 G, 2X/DAY
     Route: 048
  5. MAREVAN [Concomitant]
     Dosage: 5 MG, 1X/DAY
     Route: 048
  6. FURESIS [Concomitant]
     Dosage: 40 MG, 1X/DAY
     Route: 048
  7. RENITEC [Concomitant]
     Dosage: 20 MG, 1X/DAY
     Route: 048
  8. ATORVASTATIN [Concomitant]
     Dosage: 10 MG, 1X/DAY
     Route: 048
  9. EMGESAN [Concomitant]
     Dosage: 250 MG, 2X/DAY
     Route: 048
  10. PREDNISOLON [Concomitant]
     Dosage: 7.5 MG, 1X/DAY
  11. OXYCONTIN [Concomitant]
     Dosage: 10 MG, 2X/DAY
     Route: 048
  12. LYRICA [Concomitant]
     Dosage: 75 MG, 2X/DAY

REACTIONS (6)
  - Skin reaction [Recovered/Resolved]
  - Rash generalised [Recovered/Resolved]
  - Pyrexia [Recovered/Resolved]
  - Chills [Recovered/Resolved]
  - Nausea [Recovered/Resolved]
  - Gastrointestinal disorder [Recovered/Resolved]
